FAERS Safety Report 10499821 (Version 2)
Quarter: 2014Q4

REPORT INFORMATION
  Report Type: Spontaneous
  Country: US (occurrence: US)
  Receive Date: 20141006
  Receipt Date: 20141006
  Transmission Date: 20150528
  Serious: No
  Sender: FDA-Public Use
  Company Number: US-AMGEN INC.-USASP2014057204

PATIENT
  Age: 80 Year
  Sex: Female
  Weight: 69.84 kg

DRUGS (1)
  1. PROLIA [Suspect]
     Active Substance: DENOSUMAB
     Indication: OSTEOPOROSIS POSTMENOPAUSAL
     Dosage: UNK
     Route: 058
     Dates: start: 20130710

REACTIONS (3)
  - Induration [Unknown]
  - Pruritus [Unknown]
  - Mass [Unknown]

NARRATIVE: CASE EVENT DATE: 20130710
